FAERS Safety Report 4990129-1 (Version None)
Quarter: 2006Q2

REPORT INFORMATION
  Report Type: 
  Country: None (occurrence: None)
  Receive Date: 20060501
  Receipt Date: 20060501
  Transmission Date: 20061013
  Serious: No
  Sender: FDA-Public Use
  Company Number: None

PATIENT
  Age: 54 Year
  Sex: Male
  Weight: 86.1834 kg

DRUGS (2)
  1. HYDROCHLOROTHIAZIDE [Suspect]
     Dosage: 25 MG DAILY PO
     Route: 048
  2. OXCARBAZEPINE [Suspect]
     Dosage: 900 MG DAILY PO
     Route: 048

REACTIONS (1)
  - BLOOD SODIUM DECREASED [None]
